FAERS Safety Report 8296505-6 (Version None)
Quarter: 2012Q2

REPORT INFORMATION
  Report Type: 
  Country: None (occurrence: None)
  Receive Date: 20120418
  Receipt Date: 20120416
  Transmission Date: 20120825
  Serious: No
  Sender: FDA-Public Use
  Company Number: US-PFIZER INC-2012094515

PATIENT
  Sex: Male
  Weight: 94 kg

DRUGS (2)
  1. RELPAX [Suspect]
     Indication: MIGRAINE
     Dosage: 20 MG, AS NEEDED
     Route: 048
     Dates: end: 20120410
  2. RELPAX [Suspect]
     Indication: HEADACHE

REACTIONS (2)
  - MIGRAINE [None]
  - ERECTILE DYSFUNCTION [None]
